FAERS Safety Report 6539741-9 (Version None)
Quarter: 2010Q1

REPORT INFORMATION
  Report Type: 
  Country: None (occurrence: None)
  Receive Date: 20100115
  Receipt Date: 20100105
  Transmission Date: 20100710
  Serious: Yes (Death)
  Sender: FDA-Public Use
  Company Number: US-MERCK-1001USA00912

PATIENT
  Age: 51 Year
  Sex: Female

DRUGS (11)
  1. LISINOPRIL [Suspect]
     Route: 048
  2. ENALAPRIL MALEATE [Suspect]
     Route: 048
  3. ATENOLOL [Suspect]
     Route: 048
  4. BUPROPION HYDROCHLORIDE [Suspect]
     Route: 048
  5. CYCLOBENZAPRINE HYDROCHLORIDE [Suspect]
     Route: 048
  6. DICLOFENAC [Suspect]
     Route: 048
  7. LOVASTATIN [Suspect]
     Route: 048
  8. GLIBENCLAMID [Suspect]
     Route: 048
  9. ZOLPIDEM TARTRATE [Suspect]
     Route: 048
  10. ALPRAZOLAM [Suspect]
     Route: 048
  11. FLUOXETINE [Suspect]
     Route: 048

REACTIONS (2)
  - COMPLETED SUICIDE [None]
  - DRUG TOXICITY [None]
